FAERS Safety Report 9527036 (Version 2)
Quarter: 2013Q3

REPORT INFORMATION
  Report Type: Spontaneous
  Country: NO (occurrence: NO)
  Receive Date: 20130916
  Receipt Date: 20130916
  Transmission Date: 20140515
  Serious: Yes (Hospitalization, Other)
  Sender: FDA-Public Use
  Company Number: NO-PFIZER INC-2013226082

PATIENT
  Age: 64 Year
  Sex: Male

DRUGS (3)
  1. ATORVASTATIN PFIZER [Suspect]
     Indication: BLOOD CHOLESTEROL INCREASED
     Dosage: 40 MG, UNK
     Route: 048
  2. ATORVASTATIN PFIZER [Suspect]
     Dosage: 80 MG, UNK
  3. ATORVASTATIN PFIZER [Suspect]
     Dosage: 40 MG, UNK
     Dates: start: 20130703

REACTIONS (6)
  - Product substitution issue [Unknown]
  - Malaise [Unknown]
  - Liver function test abnormal [Unknown]
  - Cerebrovascular accident [Unknown]
  - Drug ineffective [Unknown]
  - Blood lactate dehydrogenase increased [Unknown]
